FAERS Safety Report 8299800-X (Version None)
Quarter: 2012Q2

REPORT INFORMATION
  Report Type: 
  Country: None (occurrence: None)
  Receive Date: 20120419
  Receipt Date: 20120419
  Transmission Date: 20120825
  Serious: Yes (Life-Threatening)
  Sender: FDA-Public Use
  Company Number: None

PATIENT
  Age: 54 Year
  Sex: Female
  Weight: 62.595 kg

DRUGS (1)
  1. ASACOL HD [Suspect]
     Indication: CROHN'S DISEASE
     Dosage: 1600 MGM
     Route: 048
     Dates: start: 20120208, end: 20120220

REACTIONS (2)
  - PYREXIA [None]
  - HEPATIC ENZYME INCREASED [None]
